FAERS Safety Report 5383868-4 (Version None)
Quarter: 2007Q3

REPORT INFORMATION
  Report Type: 
  Country: None (occurrence: None)
  Receive Date: 20070711
  Receipt Date: 20070629
  Transmission Date: 20080115
  Serious: Yes (Life-Threatening, Hospitalization)
  Sender: FDA-Public Use
  Company Number: US-JNJFOC-20060906578

PATIENT
  Sex: Male
  Weight: 63.96 kg

DRUGS (19)
  1. FENTANYL TRANSDERMAL SYSTEM [Suspect]
     Route: 062
  2. FENTANYL TRANSDERMAL SYSTEM [Suspect]
     Route: 062
  3. FENTANYL TRANSDERMAL SYSTEM [Suspect]
     Indication: PAIN
     Route: 062
  4. ASPIRIN [Concomitant]
     Route: 048
  5. LIPITOR [Concomitant]
     Indication: HYPERLIPIDAEMIA
     Route: 048
  6. NPH INSULIN [Concomitant]
     Indication: DIABETES MELLITUS
     Dosage: 26U AM AND 24U PM
     Route: 058
  7. ALPHAGAN [Concomitant]
     Route: 031
  8. CAPSAICIN [Concomitant]
     Route: 061
  9. DILTIAZEM [Concomitant]
     Indication: CORONARY ARTERY DISEASE
     Route: 048
  10. DILTIAZEM [Concomitant]
     Indication: HYPERTENSION
     Route: 048
  11. FOLIC ACID [Concomitant]
     Route: 048
  12. GEMFIBROZIL [Concomitant]
     Indication: HYPERLIPIDAEMIA
     Route: 048
  13. GLYBURIDE [Concomitant]
     Indication: DIABETES MELLITUS
     Route: 048
  14. OXYCODONE HCL [Concomitant]
     Indication: PAIN
     Route: 048
  15. LAMISIL [Concomitant]
     Indication: ONYCHOMYCOSIS
     Route: 048
  16. ISOSORBIDE DINITRATE [Concomitant]
     Indication: CORONARY ARTERY DISEASE
     Route: 048
  17. LISINOPRIL [Concomitant]
     Route: 048
  18. OMEPRAZOLE [Concomitant]
     Indication: GASTROOESOPHAGEAL REFLUX DISEASE
     Route: 048
  19. ZOLOFT [Concomitant]
     Indication: DEPRESSION
     Route: 048

REACTIONS (6)
  - DEVICE MALFUNCTION [None]
  - INCORRECT DRUG ADMINISTRATION DURATION [None]
  - KIDNEY INFECTION [None]
  - OVERDOSE [None]
  - RESPIRATORY ARREST [None]
  - UNRESPONSIVE TO STIMULI [None]
